FAERS Safety Report 5811586-4 (Version None)
Quarter: 2008Q3

REPORT INFORMATION
  Report Type: 
  Country: None (occurrence: None)
  Receive Date: 20080716
  Receipt Date: 20080707
  Transmission Date: 20090109
  Serious: Yes (Hospitalization, Other)
  Sender: FDA-Public Use
  Company Number: FR-MERCK-0805FRA00038

PATIENT
  Age: 48 Year
  Sex: Male

DRUGS (6)
  1. ISENTRESS [Suspect]
     Indication: HIV INFECTION
     Route: 048
     Dates: start: 20080327, end: 20080509
  2. LOPINAVIR AND RITONAVIR [Concomitant]
     Indication: HIV INFECTION
     Route: 048
     Dates: start: 20080327, end: 20080509
  3. TENOFOVIR DISOPROXIL FUMARATE [Concomitant]
     Indication: HIV INFECTION
     Route: 048
     Dates: start: 20080327, end: 20080509
  4. ATOVAQUONE [Concomitant]
     Route: 048
  5. METOCLOPRAMIDE HYDROCHLORIDE [Concomitant]
     Route: 048
  6. FOLIC ACID [Concomitant]
     Route: 048

REACTIONS (4)
  - PANCYTOPENIA [None]
  - PNEUMONIA [None]
  - T-CELL LYMPHOMA [None]
  - THROMBOCYTOPENIA [None]
